FAERS Safety Report 7264533-5 (Version None)
Quarter: 2011Q1

REPORT INFORMATION
  Report Type: 
  Country: None (occurrence: None)
  Receive Date: 20110131
  Receipt Date: 20110125
  Transmission Date: 20110831
  Serious: No
  Sender: FDA-Public Use
  Company Number: US-PFIZER INC-2011018298

PATIENT
  Age: 80 Year
  Sex: Male

DRUGS (1)
  1. PRISTIQ [Suspect]
     Dosage: UNK
     Route: 048

REACTIONS (2)
  - TABLET PHYSICAL ISSUE [None]
  - DRUG INEFFECTIVE [None]
